FAERS Safety Report 8407637 (Version 5)
Quarter: 2013Q1

REPORT INFORMATION
  Report Type: Report from Study
  Country: AU (occurrence: AU)
  Receive Date: 20120215
  Receipt Date: 20130130
  Transmission Date: 20140127
  Serious: Yes (Other)
  Sender: FDA-Public Use
  Company Number: AU-CELGENEUS-008-C5013-12020192

PATIENT
  Age: 74 Year
  Sex: Male

DRUGS (15)
  1. THALIDOMIDE [Suspect]
     Indication: PLASMA CELL MYELOMA
     Dosage: 200 MILLIGRAM
     Route: 048
     Dates: start: 20090324
  2. THALIDOMIDE [Suspect]
     Dosage: 100 MILLIGRAM
     Route: 048
     Dates: start: 20100414, end: 20100909
  3. MELPHALAN [Suspect]
     Indication: PLASMA CELL MYELOMA
     Dosage: 14 MILLIGRAM
     Route: 065
     Dates: start: 20090324
  4. MELPHALAN [Suspect]
     Dosage: 10 MILLIGRAM
     Route: 065
     Dates: start: 20100611, end: 20100614
  5. MELPHALAN [Suspect]
     Dosage: 6 MILLIGRAM
     Route: 065
     Dates: start: 20100730, end: 20100802
  6. PREDNISONE [Suspect]
     Indication: PLASMA CELL MYELOMA
     Dosage: 115 MILLIGRAM
     Route: 065
     Dates: start: 20090324
  7. PREDNISONE [Suspect]
     Dosage: 170 MILLIGRAM
     Route: 065
     Dates: end: 20100802
  8. FERROUS FUMARATE + FOLATE [Concomitant]
     Indication: ANAEMIA
     Route: 065
     Dates: start: 200901
  9. ASPIRINE [Concomitant]
     Indication: THROMBOSIS PROPHYLAXIS
     Route: 065
     Dates: start: 200808
  10. VITAMIN C [Concomitant]
     Indication: VITAMIN SUPPLEMENTATION
     Route: 065
     Dates: start: 200901
  11. METOPROLOL [Concomitant]
     Indication: HYPERTENSION
     Route: 065
     Dates: start: 200808
  12. METOPROLOL [Concomitant]
     Indication: CARDIAC DISORDER
  13. ESOMEPRAZOLE [Concomitant]
     Indication: DYSPEPSIA
     Route: 065
     Dates: start: 200808
  14. DOCUSATE SODIUM W/SENNOSIDE A+B [Concomitant]
     Indication: CONSTIPATION
     Route: 065
     Dates: start: 20090504
  15. RAMIPRIL [Concomitant]
     Indication: HYPERTENSION
     Route: 065
     Dates: start: 20091016

REACTIONS (1)
  - Prostate cancer [Not Recovered/Not Resolved]
